FAERS Safety Report 4504414-0 (Version None)
Quarter: 2004Q4

REPORT INFORMATION
  Report Type: 
  Country: None (occurrence: None)
  Receive Date: 20041116
  Receipt Date: 20041105
  Transmission Date: 20050328
  Serious: Yes (Hospitalization, Disabling)
  Sender: FDA-Public Use
  Company Number: 2004240678US

PATIENT
  Age: 44 Year
  Sex: Female
  Weight: 96.6 kg

DRUGS (27)
  1. ELLENCE [Suspect]
     Indication: BREAST CANCER STAGE III
     Dosage: 210 MG (100 MG/M2), Q3WKS, IV
     Route: 042
     Dates: start: 20040604
  2. COMPARATOR-DOCETAXEL) INJECTION [Suspect]
     Indication: BREAST CANCER STAGE III
     Dosage: 70 MG (35 MG/M2), D 1+8 Q3WKS, IV
     Route: 042
     Dates: start: 20040830, end: 20041018
  3. COMPARATOR-CAPECITABINE TABLET [Suspect]
     Indication: BREAST CANCER STAGE III
     Dosage: SEE IMAGE
     Route: 048
     Dates: start: 20040830, end: 20041018
  4. CYCLOPHOSPHAMIDE [Suspect]
     Indication: BREAST CANCER STAGE III
     Dosage: 1035 MG(500 MG/M2) Q3WKS, IV
     Route: 042
     Dates: start: 20040604
  5. FLUOROURACIL [Suspect]
     Indication: BREAST CANCER STAGE III
     Dosage: 1035 MG (500 MG MG/M2) Q3WKS, IV
     Route: 042
     Dates: start: 20040604
  6. DEXAMETHASONE [Concomitant]
  7. ALDACTAZIDE [Concomitant]
  8. WELLBUTRIN [Concomitant]
  9. COUMADIN [Concomitant]
  10. DIFLUCAN [Concomitant]
  11. COMPAZINE [Concomitant]
  12. AMBIEN [Concomitant]
  13. IMODIUM [Concomitant]
  14. LIPITOR [Concomitant]
  15. LEXAPRO [Concomitant]
  16. LORAZEPAM [Concomitant]
  17. EMLA (PRILOCAINE) [Concomitant]
  18. MORPHINE SULFATE [Concomitant]
  19. ALBUTEROL [Concomitant]
  20. ZYRTEC [Concomitant]
  21. PANTOPRAZOLE [Concomitant]
  22. NEURONTIN [Concomitant]
  23. PREDNISOLONE [Concomitant]
  24. ANZEMET (DOLASETRON MESILATE) [Concomitant]
  25. DECADRON [Concomitant]
  26. ZITHROMAX [Concomitant]
  27. COMPARATOR CAPECITABINE [Suspect]

REACTIONS (3)
  - ABASIA [None]
  - OEDEMA [None]
  - PALMAR-PLANTAR ERYTHRODYSAESTHESIA SYNDROME [None]
